FAERS Safety Report 7430921-7 (Version None)
Quarter: 2011Q2

REPORT INFORMATION
  Report Type: 
  Country: None (occurrence: None)
  Receive Date: 20110421
  Receipt Date: 20110407
  Transmission Date: 20111010
  Serious: No
  Sender: FDA-Public Use
  Company Number: US-ASTRAZENECA-2008UW03276

PATIENT
  Age: 71 Year
  Sex: Female
  Weight: 70.3 kg

DRUGS (9)
  1. SEROQUEL [Suspect]
     Route: 048
  2. ENALAPRIL MALEATE [Concomitant]
     Indication: HYPERTENSION
  3. SEROQUEL [Suspect]
     Indication: DEPRESSION
     Route: 048
     Dates: start: 20060101
  4. LUNESTA [Suspect]
     Dates: start: 20070101
  5. SEROQUEL [Suspect]
     Indication: SLEEP DISORDER
     Route: 048
     Dates: start: 20060101
  6. LUNESTA [Suspect]
  7. ATENOLOL [Concomitant]
     Indication: HYPERTENSION
  8. SEROQUEL [Suspect]
     Route: 048
  9. ENALAPRIL MALEATE [Concomitant]
     Indication: BLOOD PRESSURE

REACTIONS (10)
  - FALL [None]
  - FATIGUE [None]
  - PLATELET COUNT INCREASED [None]
  - WRONG TECHNIQUE IN DRUG USAGE PROCESS [None]
  - ABNORMAL DREAMS [None]
  - INSOMNIA [None]
  - THROAT IRRITATION [None]
  - SOMNOLENCE [None]
  - DRUG DOSE OMISSION [None]
  - WEIGHT INCREASED [None]
